FAERS Safety Report 6343459-5 (Version None)
Quarter: 2009Q3

REPORT INFORMATION
  Report Type: 
  Country: None (occurrence: None)
  Receive Date: 20090908
  Receipt Date: 20090827
  Transmission Date: 20100115
  Serious: Yes (Hospitalization)
  Sender: FDA-Public Use
  Company Number: US-PFIZER INC-2009157668

PATIENT
  Sex: Male
  Weight: 81.179 kg

DRUGS (8)
  1. CAMPTOSAR [Suspect]
     Indication: RECTAL CANCER
     Dosage: 340 MG OVER 2 HOURS
     Route: 042
     Dates: start: 20080805, end: 20080903
  2. FLUOROURACIL [Suspect]
     Dosage: 3750 MG, OVER 48 HOURS
     Route: 042
  3. LEUCOVORIN CALCIUM [Suspect]
     Dosage: 790 MG, OVER 2 HOURS
     Route: 042
  4. AVASTIN [Suspect]
     Indication: COLON CANCER METASTATIC
     Dosage: 560 MG, EVERY 14 DAYS
     Route: 042
     Dates: start: 20081013, end: 20090112
  5. DEXAMETHASONE [Concomitant]
  6. ATROPINE [Concomitant]
  7. BENADRYL [Concomitant]
  8. ALOXI [Concomitant]

REACTIONS (1)
  - MYOSITIS [None]
